FAERS Safety Report 6456049-0 (Version None)
Quarter: 2009Q4

REPORT INFORMATION
  Report Type: 
  Country: None (occurrence: None)
  Receive Date: 20091125
  Receipt Date: 20091113
  Transmission Date: 20100525
  Serious: Yes (Other)
  Sender: FDA-Public Use
  Company Number: JP-JNJFOC-20091106980

PATIENT
  Age: 38 Year
  Sex: Male

DRUGS (3)
  1. CRAVIT [Suspect]
     Indication: BRONCHITIS
     Route: 048
     Dates: start: 20091113, end: 20091113
  2. AMINOPHYLLINE [Suspect]
     Indication: DRUG USE FOR UNKNOWN INDICATION
     Route: 065
     Dates: start: 20091113
  3. SAXIZON [Concomitant]
     Route: 065
     Dates: start: 20091113

REACTIONS (2)
  - SHOCK [None]
  - URTICARIA [None]
